FAERS Safety Report 9417871 (Version 2)
Quarter: 2013Q3

REPORT INFORMATION
  Report Type: Spontaneous
  Country: US (occurrence: US)
  Receive Date: 20130724
  Receipt Date: 20130812
  Transmission Date: 20140515
  Serious: Yes (Other)
  Sender: FDA-Public Use
  Company Number: US-TEVA-420649USA

PATIENT
  Sex: 0

DRUGS (2)
  1. RANITIDINE [Suspect]
  2. ESCITALOPRAM [Suspect]

REACTIONS (1)
  - Coeliac disease [Unknown]
